FAERS Safety Report 12345375 (Version 1)
Quarter: 2016Q2

REPORT INFORMATION
  Report Type: Spontaneous
  Country: US (occurrence: US)
  Receive Date: 20160508
  Receipt Date: 20160508
  Transmission Date: 20160815
  Serious: No
  Sender: FDA-Public Use
  Company Number: US-HORIZON-PRE-0138-2016

PATIENT
  Sex: Female

DRUGS (3)
  1. PLAQUENIL [Concomitant]
     Active Substance: HYDROXYCHLOROQUINE SULFATE
  2. METHOTREXATE [Concomitant]
     Active Substance: METHOTREXATE
  3. RAYOS [Suspect]
     Active Substance: PREDNISONE
     Indication: UVEITIS
     Dosage: 5 MG DAILY

REACTIONS (1)
  - Initial insomnia [Unknown]
